FAERS Safety Report 8782113 (Version 2)
Quarter: 2013Q1

REPORT INFORMATION
  Report Type: Report from Study
  Country: US (occurrence: US)
  Receive Date: 20120913
  Receipt Date: 20130125
  Transmission Date: 20140127
  Serious: Yes (Other)
  Sender: FDA-Public Use
  Company Number: US-US-EMD SERONO, INC.-7159692

PATIENT
  Sex: Male
  Weight: 88 kg

DRUGS (2)
  1. REBIF [Suspect]
     Indication: MULTIPLE SCLEROSIS
     Route: 058
     Dates: start: 20120629
  2. AMPYRA [Concomitant]
     Dates: start: 201211

REACTIONS (4)
  - Fibula fracture [Recovered/Resolved]
  - Fall [Recovered/Resolved]
  - Dizziness [Unknown]
  - Asthenia [Unknown]
